FAERS Safety Report 11828709 (Version 1)
Quarter: 2015Q4

REPORT INFORMATION
  Report Type: Spontaneous
  Country: US (occurrence: US)
  Receive Date: 20151211
  Receipt Date: 20151211
  Transmission Date: 20160305
  Serious: No
  Sender: FDA-Public Use
  Company Number: US-BAUSCH-BL-2015-010199

PATIENT
  Age: 80 Year
  Sex: Female

DRUGS (1)
  1. XENAZINE [Suspect]
     Active Substance: TETRABENAZINE
     Indication: HUNTINGTON^S DISEASE
     Route: 048
     Dates: start: 20141028

REACTIONS (5)
  - Memory impairment [Unknown]
  - Abnormal dreams [Unknown]
  - Hyperphagia [Unknown]
  - Weight increased [Unknown]
  - Depressed mood [Unknown]
